FAERS Safety Report 5554933-3 (Version None)
Quarter: 2007Q4

REPORT INFORMATION
  Report Type: 
  Country: None (occurrence: None)
  Receive Date: 20071213
  Receipt Date: 20071206
  Transmission Date: 20080405
  Serious: Yes (Disabling)
  Sender: FDA-Public Use
  Company Number: JP-ASTRAZENECA-2007AP05489

PATIENT
  Age: 76 Year
  Sex: Female
  Weight: 55 kg

DRUGS (6)
  1. IRESSA [Suspect]
     Indication: LUNG ADENOCARCINOMA
     Route: 048
     Dates: end: 20070820
  2. IRESSA [Suspect]
     Route: 048
     Dates: start: 20070906, end: 20070912
  3. STOGAR [Concomitant]
     Indication: GASTRITIS
     Dosage: DOSE UNKNOWN
     Route: 048
     Dates: end: 20070820
  4. SIGMART [Concomitant]
     Dosage: DOSE UNKNOWN
     Route: 048
     Dates: end: 20070820
  5. KAMAG G [Concomitant]
     Indication: CONSTIPATION
     Route: 048
     Dates: end: 20070820
  6. WARFARIN SODIUM [Concomitant]
     Indication: CEREBROVASCULAR ACCIDENT PROPHYLAXIS
     Route: 048
     Dates: end: 20070820

REACTIONS (1)
  - CEREBRAL INFARCTION [None]
